FAERS Safety Report 5467498-1 (Version None)
Quarter: 2007Q3

REPORT INFORMATION
  Report Type: 
  Country: None (occurrence: None)
  Receive Date: 20070925
  Receipt Date: 20070917
  Transmission Date: 20080115
  Serious: Yes (Other)
  Sender: FDA-Public Use
  Company Number: DE-ROXANE LABORATORIES, INC-2007-BP-21197RO

PATIENT
  Sex: Female

DRUGS (4)
  1. AZATHIOPRINE [Suspect]
     Indication: CROHN'S DISEASE
     Dates: start: 20010101
  2. PREDNISONE [Suspect]
     Indication: CROHN'S DISEASE
  3. BUDESONIDE [Suspect]
     Indication: CROHN'S DISEASE
  4. GENOTROPIN [Suspect]
     Indication: GROWTH HORMONE DEFICIENCY

REACTIONS (3)
  - FISTULA [None]
  - ILEAL PERFORATION [None]
  - TREATMENT FAILURE [None]
